FAERS Safety Report 7310461-6 (Version None)
Quarter: 2011Q1

REPORT INFORMATION
  Report Type: 
  Country: None (occurrence: None)
  Receive Date: 20110224
  Receipt Date: 20100909
  Transmission Date: 20110831
  Serious: No
  Sender: FDA-Public Use
  Company Number: US-BRISTOL-MYERS SQUIBB COMPANY-15278633

PATIENT
  Age: 59 Year

DRUGS (4)
  1. TEKTURNA [Suspect]
  2. COZAAR [Suspect]
  3. METFORMIN HCL [Suspect]
  4. LISINOPRIL [Suspect]

REACTIONS (6)
  - BLOOD GLUCOSE INCREASED [None]
  - PAIN IN EXTREMITY [None]
  - RASH [None]
  - GAIT DISTURBANCE [None]
  - OEDEMA PERIPHERAL [None]
  - MUSCLE DISORDER [None]
